FAERS Safety Report 18821166 (Version 1)
Quarter: 2021Q1

REPORT INFORMATION
  Report Type: Spontaneous
  Country: US (occurrence: US)
  Receive Date: 20210201
  Receipt Date: 20210201
  Transmission Date: 20210419
  Serious: Yes (Hospitalization)
  Sender: FDA-Public Use
  Company Number: None

PATIENT
  Sex: Female

DRUGS (22)
  1. REBIF [Suspect]
     Active Substance: INTERFERON BETA-1A
     Indication: MULTIPLE SCLEROSIS
     Dosage: ?          OTHER DOSE:1 SYR;?
     Route: 058
     Dates: start: 20140108
  2. TOPAMAX [Concomitant]
     Active Substance: TOPIRAMATE
  3. ARMODAFINIL. [Concomitant]
     Active Substance: ARMODAFINIL
  4. FENOFIBRATE. [Concomitant]
     Active Substance: FENOFIBRATE
  5. GEMFIBROZIL. [Concomitant]
     Active Substance: GEMFIBROZIL
  6. ORTHO TRL?CYCLEN [Concomitant]
  7. SUMATRIPTAN. [Concomitant]
     Active Substance: SUMATRIPTAN
  8. VITAMIN B12 [Concomitant]
     Active Substance: CYANOCOBALAMIN
  9. IBUPROFEN. [Concomitant]
     Active Substance: IBUPROFEN
  10. APAP/CODEINE [Concomitant]
     Active Substance: ACETAMINOPHEN\CODEINE PHOSPHATE
  11. FLUTICASONE. [Concomitant]
     Active Substance: FLUTICASONE
  12. ZYRTEC ALLGY [Concomitant]
  13. MULTIVITAMIN [Concomitant]
     Active Substance: VITAMINS
  14. NORTRIPTYLIN [Concomitant]
     Active Substance: NORTRIPTYLINE
  15. VICODIN [Concomitant]
     Active Substance: ACETAMINOPHEN\HYDROCODONE BITARTRATE
  16. FIBER?CAPS [Concomitant]
  17. FISH OIL [Concomitant]
     Active Substance: FISH OIL
  18. LYZA [Concomitant]
     Active Substance: NORETHINDRONE
  19. POT CHLORIDE ER [Concomitant]
  20. TEMAZEPAM. [Concomitant]
     Active Substance: TEMAZEPAM
  21. TOPIRAMATE. [Concomitant]
     Active Substance: TOPIRAMATE
  22. VITAMIN D3 [Concomitant]
     Active Substance: CHOLECALCIFEROL

REACTIONS (2)
  - Ovarian cystectomy [None]
  - Appendicectomy [None]
